FAERS Safety Report 7435032-2 (Version None)
Quarter: 2011Q2

REPORT INFORMATION
  Report Type: 
  Country: None (occurrence: None)
  Receive Date: 20110425
  Receipt Date: 20110412
  Transmission Date: 20111010
  Serious: Yes (Other)
  Sender: FDA-Public Use
  Company Number: PHHY2011CN31320

PATIENT
  Age: 34 Year
  Sex: Male

DRUGS (2)
  1. COMB. OF DRUGS FOR TREATMENT OF TUBERCULOSIS [Concomitant]
  2. SEBIVO [Suspect]
     Indication: HEPATITIS B
     Dosage: 600 MG, QD
     Route: 048
     Dates: start: 20100501

REACTIONS (4)
  - PAIN [None]
  - BLOOD CREATINE PHOSPHOKINASE INCREASED [None]
  - ASTHENIA [None]
  - DYSPNOEA [None]
